FAERS Safety Report 14477301 (Version 1)
Quarter: 2018Q1

REPORT INFORMATION
  Report Type: Report from Study
  Country: US (occurrence: US)
  Receive Date: 20180201
  Receipt Date: 20180201
  Transmission Date: 20180509
  Serious: No
  Sender: FDA-Public Use
  Company Number: US-EXELIXIS-CABO-17010503

PATIENT
  Sex: Female

DRUGS (25)
  1. ASPIRIN. [Concomitant]
     Active Substance: ASPIRIN
  2. RANITIDINE. [Concomitant]
     Active Substance: RANITIDINE
  3. METOPROLOL. [Concomitant]
     Active Substance: METOPROLOL
  4. COMETRIQ [Suspect]
     Active Substance: CABOZANTINIB S-MALATE
     Indication: THYROID CANCER
     Dosage: 60 MG, QD
     Route: 048
     Dates: start: 20170816, end: 20170906
  5. ZOCOR [Concomitant]
     Active Substance: SIMVASTATIN
  6. ISOSORBIDE MONONITRATE. [Concomitant]
     Active Substance: ISOSORBIDE MONONITRATE
  7. UREA. [Concomitant]
     Active Substance: UREA
  8. SIMVASTATIN. [Concomitant]
     Active Substance: SIMVASTATIN
  9. JANUVIA [Concomitant]
     Active Substance: SITAGLIPTIN PHOSPHATE
  10. OXYCODONE [Concomitant]
     Active Substance: OXYCODONE
  11. CLONIDINE. [Concomitant]
     Active Substance: CLONIDINE
  12. LISINOPRIL. [Concomitant]
     Active Substance: LISINOPRIL
  13. FERROUS SULFATE. [Concomitant]
     Active Substance: FERROUS SULFATE
  14. LOPERAMIDE [Concomitant]
     Active Substance: LOPERAMIDE
  15. AMLODIPINE [Concomitant]
     Active Substance: AMLODIPINE BESYLATE
  16. BIOTIN [Concomitant]
     Active Substance: BIOTIN
  17. BENADRYL [Concomitant]
     Active Substance: DIPHENHYDRAMINE HYDROCHLORIDE
  18. INSULIN [Concomitant]
     Active Substance: INSULIN NOS
  19. MUPIROCIN. [Concomitant]
     Active Substance: MUPIROCIN
  20. RENVELA [Concomitant]
     Active Substance: SEVELAMER CARBONATE
  21. ALBUTEROL. [Concomitant]
     Active Substance: ALBUTEROL
  22. LEVOTHYROXIN [Concomitant]
     Active Substance: LEVOTHYROXINE
  23. COMETRIQ [Suspect]
     Active Substance: CABOZANTINIB S-MALATE
     Indication: METASTASES TO LUNG
     Dosage: 60 MG, QD
     Route: 048
     Dates: start: 20170910
  24. BENZONATATE. [Concomitant]
     Active Substance: BENZONATATE
  25. FUROSEMIDE. [Concomitant]
     Active Substance: FUROSEMIDE

REACTIONS (4)
  - Diarrhoea [Unknown]
  - Muscle spasms [Unknown]
  - Mouth ulceration [Unknown]
  - Gastric disorder [Unknown]
